FAERS Safety Report 25630283 (Version 3)
Quarter: 2025Q4

REPORT INFORMATION
  Report Type: Spontaneous
  Country: US (occurrence: US)
  Receive Date: 20250801
  Receipt Date: 20251001
  Transmission Date: 20260117
  Serious: Yes (Hospitalization, Other)
  Sender: AMNEAL
  Company Number: US-AMNEAL PHARMACEUTICALS-2025-AMRX-02760

PATIENT
  Age: 28 Year
  Sex: Female

DRUGS (3)
  1. ISOTRETINOIN [Suspect]
     Active Substance: ISOTRETINOIN
     Indication: Product used for unknown indication
     Dosage: 30 MILLIGRAM, BID
     Route: 065
     Dates: start: 20241205
  2. ISOTRETINOIN [Suspect]
     Active Substance: ISOTRETINOIN
     Dosage: 20 MILLIGRAM
     Route: 065
  3. ISOTRETINOIN [Suspect]
     Active Substance: ISOTRETINOIN
     Dosage: 40 MILLIGRAM
     Route: 065

REACTIONS (3)
  - Abortion induced [Unknown]
  - Retained products of conception [Recovered/Resolved]
  - Exposure during pregnancy [Unknown]

NARRATIVE: CASE EVENT DATE: 20250601
